FAERS Safety Report 15843890 (Version 1)
Quarter: 2019Q1

REPORT INFORMATION
  Report Type: Spontaneous
  Country: DE (occurrence: DE)
  Receive Date: 20190118
  Receipt Date: 20190118
  Transmission Date: 20190417
  Serious: Yes (Death, Other)
  Sender: FDA-Public Use
  Company Number: DE-UNITED THERAPEUTICS-UNT-2018-021426

PATIENT

DRUGS (1)
  1. REMODULIN [Suspect]
     Active Substance: TREPROSTINIL
     Indication: PULMONARY ARTERIAL HYPERTENSION
     Dosage: UNK
     Route: 041
     Dates: start: 20180130, end: 20181223

REACTIONS (4)
  - Disease progression [Fatal]
  - Product use issue [Unknown]
  - Right ventricular failure [Fatal]
  - Vital functions abnormal [Fatal]

NARRATIVE: CASE EVENT DATE: 2018
